FAERS Safety Report 5867000-6 (Version None)
Quarter: 2008Q3

REPORT INFORMATION
  Report Type: 
  Country: None (occurrence: None)
  Receive Date: 20080902
  Receipt Date: 20080825
  Transmission Date: 20090109
  Serious: Yes (Hospitalization)
  Sender: FDA-Public Use
  Company Number: A0732429A

PATIENT
  Age: 32 Year
  Sex: Female
  Weight: 59.1 kg

DRUGS (2)
  1. LAMICTAL [Suspect]
     Dosage: 100MG UNKNOWN
     Route: 048
  2. ZYPREXA [Concomitant]
     Dosage: 5MG PER DAY

REACTIONS (2)
  - HAEMOGLOBIN DECREASED [None]
  - STEVENS-JOHNSON SYNDROME [None]
